FAERS Safety Report 5409082-1 (Version None)
Quarter: 2007Q3

REPORT INFORMATION
  Report Type: 
  Country: None (occurrence: None)
  Receive Date: 20070808
  Receipt Date: 20070731
  Transmission Date: 20080115
  Serious: Yes (Hospitalization, Other)
  Sender: FDA-Public Use
  Company Number: US-MERCK-0704USA03251

PATIENT
  Age: 57 Year
  Sex: Female

DRUGS (5)
  1. FOSAMAX [Suspect]
     Indication: OSTEOPOROSIS
     Route: 048
     Dates: start: 19970401, end: 19970507
  2. FOSAMAX [Suspect]
     Route: 048
     Dates: start: 19970819
  3. FOSAMAX [Suspect]
     Route: 048
  4. ZOMETA [Concomitant]
     Indication: OSTEOPOROSIS
     Route: 042
     Dates: start: 19970701
  5. CALCIUM (UNSPECIFIED) [Concomitant]
     Route: 065

REACTIONS (8)
  - ANXIETY [None]
  - ARTHRALGIA [None]
  - CHEST PAIN [None]
  - CONSTIPATION [None]
  - DEPRESSION [None]
  - DIARRHOEA [None]
  - HAEMATURIA [None]
  - OSTEONECROSIS [None]
